FAERS Safety Report 23344281 (Version 1)
Quarter: 2023Q4

REPORT INFORMATION
  Report Type: Other
  Country: GB (occurrence: GB)
  Receive Date: 20231228
  Receipt Date: 20231228
  Transmission Date: 20240110
  Serious: Yes (Other)
  Sender: FDA-Public Use
  Company Number: GB-BoehringerIngelheim-2023-BI-279553

PATIENT
  Age: 73 Year
  Sex: Female

DRUGS (1)
  1. ALTEPLASE [Suspect]
     Active Substance: ALTEPLASE
     Indication: Retinal haemorrhage
     Dosage: 25 MG IN 0.2 ML TPA
     Route: 050

REACTIONS (3)
  - Rhegmatogenous retinal detachment [Unknown]
  - Off label use [Unknown]
  - Off label use [Unknown]
